FAERS Safety Report 5238480-4 (Version None)
Quarter: 2007Q1

REPORT INFORMATION
  Report Type: 
  Country: None (occurrence: None)
  Receive Date: 20070215
  Receipt Date: 20070206
  Transmission Date: 20070707
  Serious: Yes (Hospitalization)
  Sender: FDA-Public Use
  Company Number: 2007UW02523

PATIENT
  Age: 46 Year
  Sex: Female

DRUGS (8)
  1. SEROQUEL [Suspect]
     Indication: MAJOR DEPRESSION
     Dosage: 25 MG IN AM, 25 MG IN PM, 400 MG HS
     Route: 048
  2. SEROQUEL [Suspect]
     Indication: HALLUCINATION, AUDITORY
     Dosage: 25 MG IN AM, 25 MG IN PM, 400 MG HS
     Route: 048
  3. SEROQUEL [Suspect]
     Indication: POST-TRAUMATIC STRESS DISORDER
     Dosage: 25 MG IN AM, 25 MG IN PM, 400 MG HS
     Route: 048
  4. LAMICTAL [Suspect]
  5. LIPITOR [Concomitant]
  6. INDERAL [Concomitant]
  7. EFFEXOR [Concomitant]
  8. METFORMIN HCL [Concomitant]

REACTIONS (3)
  - RENAL FAILURE ACUTE [None]
  - RENAL IMPAIRMENT [None]
  - VOMITING [None]
